FAERS Safety Report 15133465 (Version 4)
Quarter: 2019Q2

REPORT INFORMATION
  Report Type: Spontaneous
  Country: US (occurrence: US)
  Receive Date: 20180712
  Receipt Date: 20190509
  Transmission Date: 20190711
  Serious: No
  Sender: FDA-Public Use
  Company Number: US-PFIZER INC-2018280079

PATIENT
  Age: 70 Year
  Sex: Male

DRUGS (1)
  1. SUTENT [Suspect]
     Active Substance: SUNITINIB MALATE
     Indication: RENAL CANCER
     Dosage: 50 MG, CYCLIC (DAILY FOR 4 WEEKS, THEN OFF 2 WEEKS)
     Route: 048
     Dates: start: 201807

REACTIONS (3)
  - Fatigue [Unknown]
  - Taste disorder [Unknown]
  - Sluggishness [Unknown]

NARRATIVE: CASE EVENT DATE: 201807
